FAERS Safety Report 6381320-0 (Version None)
Quarter: 2009Q3

REPORT INFORMATION
  Report Type: 
  Country: None (occurrence: None)
  Receive Date: 20090929
  Receipt Date: 20090923
  Transmission Date: 20100115
  Serious: Yes (Other)
  Sender: FDA-Public Use
  Company Number: CA-ABBOTT-09P-028-0599083-00

PATIENT
  Sex: Male
  Weight: 51.756 kg

DRUGS (6)
  1. KALETRA [Suspect]
     Indication: HIV INFECTION
     Dosage: 200/50MG
  2. TRUVADA [Concomitant]
     Indication: DRUG USE FOR UNKNOWN INDICATION
  3. ATIVAN [Concomitant]
     Indication: DRUG USE FOR UNKNOWN INDICATION
  4. ATIVAN [Concomitant]
  5. OXYCONTIN [Concomitant]
     Indication: DRUG USE FOR UNKNOWN INDICATION
  6. OXYCONTIN [Concomitant]

REACTIONS (9)
  - AMNESIA [None]
  - ANXIETY [None]
  - FALL [None]
  - FATIGUE [None]
  - FOOT FRACTURE [None]
  - HAND FRACTURE [None]
  - NERVOUSNESS [None]
  - PERIPHERAL COLDNESS [None]
  - WEIGHT DECREASED [None]
